FAERS Safety Report 8073266-7 (Version None)
Quarter: 2011Q4

REPORT INFORMATION
  Report Type: 
  Country: None (occurrence: None)
  Receive Date: 20111221
  Receipt Date: 20110527
  Transmission Date: 20120403
  Serious: Yes (Other)
  Sender: FDA-Public Use
  Company Number: PHHY2011US24864

PATIENT
  Age: 59 Year
  Sex: Male

DRUGS (1)
  1. EXJADE [Suspect]
     Dosage: 500 MG, QID, ORAL
     Route: 048

REACTIONS (1)
  - RENAL FAILURE ACUTE [None]
